FAERS Safety Report 10268440 (Version 2)
Quarter: 2014Q4

REPORT INFORMATION
  Report Type: Other
  Country: JP (occurrence: JP)
  Receive Date: 20140630
  Receipt Date: 20141006
  Transmission Date: 20150528
  Serious: Yes (Other)
  Sender: FDA-Public Use
  Company Number: JP-BRISTOL-MYERS SQUIBB COMPANY-21124128

PATIENT
  Age: 67 Year
  Sex: Male

DRUGS (4)
  1. ERBITUX [Suspect]
     Active Substance: CETUXIMAB
     Indication: SALIVARY GLAND CANCER RECURRENT
     Route: 041
     Dates: start: 201312
  2. FLUOROURACIL. [Concomitant]
     Active Substance: FLUOROURACIL
     Indication: SALIVARY GLAND CANCER RECURRENT
     Route: 041
     Dates: start: 201312
  3. DOCETAXEL. [Concomitant]
     Active Substance: DOCETAXEL
     Indication: SALIVARY GLAND CANCER RECURRENT
     Route: 041
     Dates: start: 201312
  4. CISPLATIN. [Concomitant]
     Active Substance: CISPLATIN
     Indication: SALIVARY GLAND CANCER RECURRENT
     Route: 041
     Dates: start: 201312

REACTIONS (1)
  - Cerebral infarction [Unknown]

NARRATIVE: CASE EVENT DATE: 20140109
